FAERS Safety Report 23880211 (Version 2)
Quarter: 2024Q2

REPORT INFORMATION
  Report Type: Spontaneous
  Country: IT (occurrence: IT)
  Receive Date: 20240521
  Receipt Date: 20240611
  Transmission Date: 20240715
  Serious: Yes (Hospitalization, Other)
  Sender: FDA-Public Use
  Company Number: IT-BAYER-2024A071916

PATIENT
  Age: 36 Year
  Sex: Female

DRUGS (1)
  1. KYLEENA [Suspect]
     Active Substance: LEVONORGESTREL
     Indication: Contraception
     Dosage: 17.5?G/DAY
     Route: 015
     Dates: start: 202401, end: 20240507

REACTIONS (5)
  - Pregnancy with contraceptive device [Recovered/Resolved]
  - Haemorrhagic ovarian cyst [None]
  - Biochemical pregnancy [None]
  - Haemoperitoneum [None]
  - Drug ineffective [None]

NARRATIVE: CASE EVENT DATE: 20240505
